FAERS Safety Report 8267061-3 (Version None)
Quarter: 2012Q2

REPORT INFORMATION
  Report Type: 
  Country: None (occurrence: None)
  Receive Date: 20120409
  Receipt Date: 20120403
  Transmission Date: 20120825
  Serious: Yes (Death, Life-Threatening, Hospitalization)
  Sender: FDA-Public Use
  Company Number: HK-BAYER-201017239GPV

PATIENT
  Age: 57 Year
  Sex: Male
  Weight: 65.5 kg

DRUGS (1)
  1. NEXAVAR [Suspect]
     Indication: HEPATIC NEOPLASM MALIGNANT
     Route: 048
     Dates: start: 20100126, end: 20100204

REACTIONS (3)
  - ASCITES [None]
  - RENAL FAILURE [None]
  - DYSPNOEA [None]
